FAERS Safety Report 7162285-0 (Version None)
Quarter: 2010Q4

REPORT INFORMATION
  Report Type: 
  Country: None (occurrence: None)
  Receive Date: 20101215
  Receipt Date: 20101209
  Transmission Date: 20110411
  Serious: Yes (Other)
  Sender: FDA-Public Use
  Company Number: FR-ROCHE-746717

PATIENT
  Sex: Male

DRUGS (4)
  1. MYCOPHENOLATE MOFETIL [Suspect]
     Dosage: LAST DOSE PRIOR TO SAE: 27 NOV 2010
     Route: 042
     Dates: start: 20101125
  2. NEORAL [Suspect]
     Dosage: LAST DOSE PRIOR TO SAE: 27 NOV 2010
     Route: 048
     Dates: start: 20101125
  3. SIMULECT [Suspect]
     Dosage: FREQUENCY: ON DAY 0, LAST DOSE PRIOR TO SAE: 25 NOV 2010
     Route: 065
     Dates: start: 20101125
  4. METHYLPREDNISOLONE [Suspect]
     Route: 042
     Dates: start: 20101125, end: 20101127

REACTIONS (1)
  - COMPLICATIONS OF TRANSPLANTED KIDNEY [None]
